FAERS Safety Report 17896708 (Version 1)
Quarter: 2020Q2

REPORT INFORMATION
  Report Type: Spontaneous
  Country: IT (occurrence: IT)
  Receive Date: 20200615
  Receipt Date: 20200615
  Transmission Date: 20200714
  Serious: Yes (Hospitalization, Other)
  Sender: FDA-Public Use
  Company Number: IT-GILEAD-2020-0468859

PATIENT
  Age: 59 Year
  Sex: Male

DRUGS (37)
  1. FLUDARABINE [Concomitant]
     Active Substance: FLUDARABINE PHOSPHATE
     Dosage: 50 MG
     Route: 042
     Dates: start: 20200430, end: 20200430
  2. UROMITEXAN [Concomitant]
     Active Substance: MESNA
     Dosage: 270 MG
     Dates: start: 20200430
  3. LYRICA [Concomitant]
     Active Substance: PREGABALIN
  4. MYCOSTATIN [Concomitant]
     Active Substance: NYSTATIN
  5. BECOZYM [VITAMIN B NOS] [Concomitant]
  6. GADRAL [Concomitant]
     Active Substance: MAGALDRATE
  7. TRAMADOL. [Concomitant]
     Active Substance: TRAMADOL
  8. UROMITEXAN [Concomitant]
     Active Substance: MESNA
     Dosage: 270 MG
     Dates: start: 20200502, end: 20200502
  9. CYCLOVIRAN [ACICLOVIR] [Concomitant]
  10. TACHIPIRINA [Concomitant]
     Active Substance: ACETAMINOPHEN
  11. LEVOFLOXACINA [Concomitant]
     Active Substance: LEVOFLOXACIN
  12. UROMITEXAN [Concomitant]
     Active Substance: MESNA
     Dosage: 270 MG
     Dates: start: 20200501, end: 20200501
  13. ANTORAL GOLA [Concomitant]
  14. CITOFOLIN [Concomitant]
  15. ENDOXAN [CYCLOPHOSPHAMIDE] [Concomitant]
     Active Substance: CYCLOPHOSPHAMIDE
     Dosage: 900 MG
     Route: 042
     Dates: start: 20200502, end: 20200502
  16. KEPPRA [Concomitant]
     Active Substance: LEVETIRACETAM
     Indication: PROPHYLAXIS
  17. POTASSIUM CHLORIDE. [Concomitant]
     Active Substance: POTASSIUM CHLORIDE
     Dosage: UNK
  18. FUROSEMIDE. [Concomitant]
     Active Substance: FUROSEMIDE
  19. PIPERACILLIN AND TAZOBACTAM [Concomitant]
     Active Substance: PIPERACILLIN SODIUM\TAZOBACTAM SODIUM
  20. YESCARTA [Suspect]
     Active Substance: AXICABTAGENE CILOLEUCEL
     Indication: NON-HODGKIN^S LYMPHOMA
     Dosage: UNK
     Route: 042
     Dates: start: 20200505, end: 20200505
  21. SODIUM CHLORIDE 0.9% [Concomitant]
     Active Substance: SODIUM CHLORIDE
     Dosage: UNK
  22. ACICLIN [Concomitant]
     Active Substance: ACYCLOVIR
     Dosage: UNK
  23. DEPALGOS [Concomitant]
     Active Substance: ACETAMINOPHEN\OXYCODONE HYDROCHLORIDE
  24. ALLOPURINOL. [Concomitant]
     Active Substance: ALLOPURINOL
  25. GLUCOSIO [Concomitant]
     Active Substance: DEXTROSE
  26. KONAKION [Concomitant]
     Active Substance: PHYTONADIONE
  27. PARACETAMOL [Concomitant]
     Active Substance: ACETAMINOPHEN
  28. CARDICOR [Concomitant]
     Active Substance: BISOPROLOL
  29. ENDOXAN [CYCLOPHOSPHAMIDE] [Concomitant]
     Active Substance: CYCLOPHOSPHAMIDE
     Dosage: 900 MG
     Route: 042
     Dates: start: 20200501, end: 20200501
  30. CONTRAMAL [Concomitant]
     Active Substance: TRAMADOL HYDROCHLORIDE
  31. RAMIPRIL. [Concomitant]
     Active Substance: RAMIPRIL
  32. ONDANSETRON [Concomitant]
     Active Substance: ONDANSETRON
  33. CERNEVIT [Concomitant]
     Active Substance: VITAMINS
  34. DIFLUCAN [Concomitant]
     Active Substance: FLUCONAZOLE
  35. FLUDARABINE [Concomitant]
     Active Substance: FLUDARABINE PHOSPHATE
     Dosage: 60 MG
     Route: 042
     Dates: start: 20200501, end: 20200501
  36. FLUDARABINE [Concomitant]
     Active Substance: FLUDARABINE PHOSPHATE
     Dosage: 50 MG
     Route: 042
     Dates: start: 20200502, end: 20200502
  37. ENDOXAN [CYCLOPHOSPHAMIDE] [Concomitant]
     Active Substance: CYCLOPHOSPHAMIDE
     Dosage: 900 MG
     Route: 042
     Dates: start: 20200430, end: 20200430

REACTIONS (3)
  - Aphasia [Recovered/Resolved]
  - Confusional state [Recovered/Resolved]
  - Cytokine release syndrome [Recovered/Resolved]

NARRATIVE: CASE EVENT DATE: 20200510
